FAERS Safety Report 22203085 (Version 1)
Quarter: 2023Q2

REPORT INFORMATION
  Report Type: Report from Study
  Country: GR (occurrence: GR)
  Receive Date: 20230412
  Receipt Date: 20230412
  Transmission Date: 20230721
  Serious: Yes (Death, Hospitalization, Other)
  Sender: FDA-Public Use
  Company Number: GR-TAKEDA-2023TUS037046

PATIENT
  Age: 73 Year
  Sex: Female

DRUGS (1)
  1. HUMAN IMMUNOGLOBULIN G\HYALURONIDASE RECOMBINANT HUMAN [Suspect]
     Active Substance: HUMAN IMMUNOGLOBULIN G\HYALURONIDASE RECOMBINANT HUMAN
     Indication: Immunodeficiency
     Dosage: 1 DOSAGE FORM, MONTHLY
     Route: 058
     Dates: start: 2016, end: 20221002

REACTIONS (4)
  - Pneumonia [Fatal]
  - Respiratory tract infection [Fatal]
  - Pyrexia [Fatal]
  - Benign salivary gland neoplasm [Unknown]

NARRATIVE: CASE EVENT DATE: 20200201
